FAERS Safety Report 13564164 (Version 1)
Quarter: 2017Q2

REPORT INFORMATION
  Report Type: Spontaneous
  Country: GB (occurrence: GB)
  Receive Date: 20170519
  Receipt Date: 20170519
  Transmission Date: 20170830
  Serious: Yes (Hospitalization, Other)
  Sender: FDA-Public Use
  Company Number: GB-ABBVIE-17K-167-1974892-00

PATIENT
  Sex: Female

DRUGS (1)
  1. LEVOBUPIVACAINE [Suspect]
     Active Substance: LEVOBUPIVACAINE
     Indication: EPIDURAL ANAESTHESIA
     Route: 008
     Dates: start: 20170324

REACTIONS (5)
  - Arrhythmia [Unknown]
  - Limb discomfort [Unknown]
  - Cardiac arrest [Unknown]
  - Respiratory arrest [Unknown]
  - Hypoaesthesia oral [Unknown]

NARRATIVE: CASE EVENT DATE: 20170324
